FAERS Safety Report 5533067-8 (Version None)
Quarter: 2007Q4

REPORT INFORMATION
  Report Type: 
  Country: None (occurrence: None)
  Receive Date: 20071204
  Receipt Date: 20071122
  Transmission Date: 20080405
  Serious: Yes (Hospitalization)
  Sender: FDA-Public Use
  Company Number: B0341221A

PATIENT
  Age: 6 Year
  Sex: Male

DRUGS (2)
  1. ACETAMINOPHEN [Suspect]
     Route: 048
     Dates: start: 20000101, end: 20000905
  2. CODEINE SUL TAB [Suspect]

REACTIONS (18)
  - BLINDNESS UNILATERAL [None]
  - BLISTER [None]
  - DEPRESSED LEVEL OF CONSCIOUSNESS [None]
  - DYSPNOEA [None]
  - HEADACHE [None]
  - HYPERAESTHESIA [None]
  - LIP SWELLING [None]
  - LISTLESS [None]
  - MADAROSIS [None]
  - MUSCLE TIGHTNESS [None]
  - OEDEMA MUCOSAL [None]
  - PHOTOSENSITIVITY REACTION [None]
  - PYREXIA [None]
  - RASH [None]
  - SKIN DISCOLOURATION [None]
  - TOXIC EPIDERMAL NECROLYSIS [None]
  - VISION BLURRED [None]
  - VISUAL ACUITY REDUCED [None]
